FAERS Safety Report 13430745 (Version 1)
Quarter: 2017Q2

REPORT INFORMATION
  Report Type: Spontaneous
  Country: DE (occurrence: DE)
  Receive Date: 20170412
  Receipt Date: 20170412
  Transmission Date: 20170830
  Serious: Yes (Death)
  Sender: FDA-Public Use
  Company Number: DE-009507513-1704DEU001956

PATIENT
  Age: 50 Year
  Sex: Male

DRUGS (2)
  1. JANUMET [Suspect]
     Active Substance: METFORMIN HYDROCHLORIDE\SITAGLIPTIN PHOSPHATE
     Indication: TYPE 2 DIABETES MELLITUS
     Dosage: 1 DF DOSAGE FORM, 2 IN 1 DAY
     Route: 048
     Dates: start: 201312, end: 201605
  2. VELMETIA [Suspect]
     Active Substance: METFORMIN\SITAGLIPTIN
     Indication: TYPE 2 DIABETES MELLITUS
     Dosage: 1 DF DOSAGE FORM, 2 DOSES IN 1DAY
     Route: 048
     Dates: start: 201312, end: 201605

REACTIONS (1)
  - Pancreatic carcinoma [Fatal]

NARRATIVE: CASE EVENT DATE: 201702
